FAERS Safety Report 18282738 (Version 5)
Quarter: 2021Q3

REPORT INFORMATION
  Report Type: Spontaneous
  Country: US (occurrence: US)
  Receive Date: 20200918
  Receipt Date: 20210730
  Transmission Date: 20211014
  Serious: Yes (Hospitalization)
  Sender: FDA-Public Use
  Company Number: US-PFIZER INC-2020355429

PATIENT
  Age: 76 Year
  Sex: Female
  Weight: 58.05 kg

DRUGS (6)
  1. IBRANCE [Suspect]
     Active Substance: PALBOCICLIB
     Dosage: 100 MG
  2. XGEVA [Concomitant]
     Active Substance: DENOSUMAB
     Dosage: UNK
  3. IBRANCE [Suspect]
     Active Substance: PALBOCICLIB
     Indication: BREAST CANCER METASTATIC
     Dosage: 75 MG, CYCLIC (EACH DAY FOR 21 DAYS, 7 DAYS OFF)
     Route: 048
     Dates: start: 201907
  4. IBRANCE [Suspect]
     Active Substance: PALBOCICLIB
     Dosage: 75 MG, ONCE A DAY (21 DAYS ON AND 7 DAYS OFF)
     Route: 048
  5. FASLODEX [Concomitant]
     Active Substance: FULVESTRANT
     Dosage: UNK
  6. ZYRTEC [Concomitant]
     Active Substance: CETIRIZINE HYDROCHLORIDE
     Dosage: UNK

REACTIONS (11)
  - Erythema [Unknown]
  - Alopecia [Not Recovered/Not Resolved]
  - Genital rash [Recovering/Resolving]
  - Pruritus genital [Not Recovered/Not Resolved]
  - White blood cell count decreased [Unknown]
  - Perineal pain [Not Recovered/Not Resolved]
  - Skin reaction [Unknown]
  - Urticaria [Unknown]
  - Pruritus [Not Recovered/Not Resolved]
  - Vulvovaginal pruritus [Not Recovered/Not Resolved]
  - Rash pruritic [Recovering/Resolving]

NARRATIVE: CASE EVENT DATE: 2020
